FAERS Safety Report 11157182 (Version 2)
Quarter: 2015Q2

REPORT INFORMATION
  Report Type: Report from Study
  Country: BR (occurrence: BR)
  Receive Date: 20150602
  Receipt Date: 20150625
  Transmission Date: 20150821
  Serious: Yes (Other)
  Sender: FDA-Public Use
  Company Number: PHHY2015BR065579

PATIENT
  Age: 55 Year
  Sex: Female

DRUGS (4)
  1. ACLASTA [Suspect]
     Active Substance: ZOLEDRONIC ACID
     Indication: OSTEOPOROSIS
     Dosage: 5 MG, Q12MO (1 APPLICATION/YEAR)
     Route: 042
     Dates: start: 20140325
  2. ACLASTA [Suspect]
     Active Substance: ZOLEDRONIC ACID
     Dosage: 5 MG, Q12MO (1 AMPOULE/YEAR)
     Route: 042
     Dates: start: 20150609
  3. INDERAL [Concomitant]
     Active Substance: PROPRANOLOL HYDROCHLORIDE
     Indication: MITRAL VALVE PROLAPSE
     Dosage: 1 DF, QD (40 MG)
     Route: 048
  4. AMITRIL [Concomitant]
     Active Substance: AMITRIPTYLINE HYDROCHLORIDE
     Indication: ANXIETY
     Dosage: 1 DF, QD
     Route: 048
     Dates: start: 2013

REACTIONS (5)
  - Nausea [Not Recovered/Not Resolved]
  - Viral infection [Recovering/Resolving]
  - Dengue fever [Recovered/Resolved]
  - Pyrexia [Not Recovered/Not Resolved]
  - Headache [Not Recovered/Not Resolved]

NARRATIVE: CASE EVENT DATE: 201503
